FAERS Safety Report 6576227-X (Version None)
Quarter: 2010Q1

REPORT INFORMATION
  Report Type: 
  Country: None (occurrence: None)
  Receive Date: 20100209
  Receipt Date: 20100128
  Transmission Date: 20100710
  Serious: Yes (Hospitalization, Other)
  Sender: FDA-Public Use
  Company Number: US-ELI_LILLY_AND_COMPANY-US201001000455

PATIENT
  Sex: Female
  Weight: 54.422 kg

DRUGS (10)
  1. BYETTA [Suspect]
     Indication: TYPE 2 DIABETES MELLITUS
     Dosage: 5 UG, DAILY (1/D)
     Dates: start: 20050101
  2. BYETTA [Suspect]
     Dosage: 5 UG, DAILY (1/D)
  3. TOPROL-XL [Concomitant]
     Dosage: 12.5 MG, DAILY (1/D)
     Route: 048
  4. ALDACTONE [Concomitant]
     Dosage: 25 MG, DAILY (1/D)
     Route: 048
  5. SYNTHROID [Concomitant]
     Dosage: 100 UG, DAILY (1/D)
     Route: 048
  6. DIOVAN [Concomitant]
     Dosage: 160 MG, DAILY (1/D)
     Route: 048
  7. KLONOPIN [Concomitant]
     Dosage: 1.5 MG, EACH EVENING
     Route: 048
  8. SOMA [Concomitant]
     Dosage: UNK, AS NEEDED
  9. XANAX [Concomitant]
     Dosage: 0.5 MG, EVERY 6 HRS
     Route: 048
  10. PERCOCET [Concomitant]
     Dosage: UNK, DAILY (1/D)

REACTIONS (24)
  - BLOOD GLUCOSE DECREASED [None]
  - BLOOD GLUCOSE FLUCTUATION [None]
  - BLOOD GLUCOSE INCREASED [None]
  - BODY TEMPERATURE FLUCTUATION [None]
  - DECREASED APPETITE [None]
  - DEVICE MISUSE [None]
  - DRUG DOSE OMISSION [None]
  - EMOTIONAL DISORDER [None]
  - FEELING ABNORMAL [None]
  - HERNIA [None]
  - HUNGER [None]
  - INCORRECT DOSE ADMINISTERED [None]
  - INSOMNIA [None]
  - INTENTIONAL DRUG MISUSE [None]
  - MALIGNANT MELANOMA [None]
  - NO THERAPEUTIC RESPONSE [None]
  - PRESYNCOPE [None]
  - SCAR [None]
  - SPINAL FUSION SURGERY [None]
  - THIRST [None]
  - THYROID CANCER [None]
  - THYROTOXIC CRISIS [None]
  - TREMOR [None]
  - WEIGHT DECREASED [None]
